FAERS Safety Report 10036589 (Version 1)
Quarter: 2014Q1

REPORT INFORMATION
  Report Type: Spontaneous
  Country: US (occurrence: US)
  Receive Date: 20140326
  Receipt Date: 20140326
  Transmission Date: 20141002
  Serious: No
  Sender: FDA-Public Use
  Company Number: US-BIOGENIDEC-2014BI024657

PATIENT
  Age: 43 Year
  Sex: Male

DRUGS (3)
  1. TYSABRI [Suspect]
     Indication: MULTIPLE SCLEROSIS
     Route: 042
     Dates: start: 20131002
  2. TYLENOL [Concomitant]
  3. BENADRYL [Concomitant]

REACTIONS (3)
  - Aspiration [Recovered/Resolved]
  - Choking [Recovered/Resolved]
  - Bladder catheterisation [Unknown]
